FAERS Safety Report 23549379 (Version 2)
Quarter: 2024Q1

REPORT INFORMATION
  Report Type: Spontaneous
  Country: US (occurrence: US)
  Receive Date: 20240221
  Receipt Date: 20240223
  Transmission Date: 20240409
  Serious: No
  Sender: FDA-Public Use
  Company Number: US-PFIZER INC-202400045656

PATIENT
  Age: 45 Year
  Sex: Female

DRUGS (1)
  1. VELSIPITY [Suspect]
     Active Substance: ETRASIMOD ARGININE
     Indication: Anorectal disorder
     Dosage: 2 MG, 1X/DAY
     Route: 048

REACTIONS (2)
  - Polycystic ovaries [Unknown]
  - Off label use [Unknown]
